FAERS Safety Report 25632252 (Version 1)
Quarter: 2025Q3

REPORT INFORMATION
  Report Type: Spontaneous
  Country: IN (occurrence: IN)
  Receive Date: 20250801
  Receipt Date: 20250801
  Transmission Date: 20251020
  Serious: Yes (Death, Hospitalization, Other)
  Sender: Steriscience PTE
  Company Number: IN-STERISCIENCE B.V.-2025-ST-001400

PATIENT
  Age: 52 Year
  Sex: Female

DRUGS (19)
  1. MEROPENEM [Suspect]
     Active Substance: MEROPENEM
     Indication: Antibiotic therapy
     Route: 042
  2. VANCOMYCIN [Suspect]
     Active Substance: VANCOMYCIN
     Indication: Antibiotic therapy
     Route: 042
  3. AMIKACIN [Suspect]
     Active Substance: AMIKACIN
     Indication: Antibiotic therapy
     Route: 042
  4. VINCRISTINE [Concomitant]
     Active Substance: VINCRISTINE
     Indication: Rhabdomyosarcoma
     Dosage: 1.5 MILLIGRAM/SQ. METER, BIWEEKLY, CYCLICAL
     Route: 065
  5. VINCRISTINE [Concomitant]
     Active Substance: VINCRISTINE
     Indication: Metastases to lung
  6. VINCRISTINE [Concomitant]
     Active Substance: VINCRISTINE
     Indication: Metastases to ovary
  7. CYCLOPHOSPHAMIDE [Concomitant]
     Active Substance: CYCLOPHOSPHAMIDE
     Indication: Rhabdomyosarcoma
     Dosage: 1200 MILLIGRAM/SQ. METER, BIWEEKLY, CYCLICAL
     Route: 065
  8. CYCLOPHOSPHAMIDE [Concomitant]
     Active Substance: CYCLOPHOSPHAMIDE
     Indication: Metastases to lung
  9. CYCLOPHOSPHAMIDE [Concomitant]
     Active Substance: CYCLOPHOSPHAMIDE
     Indication: Metastases to ovary
  10. DOXORUBICIN [Concomitant]
     Active Substance: DOXORUBICIN
     Indication: Rhabdomyosarcoma
     Dosage: 75 MILLIGRAM/SQ. METER, BIWEEKLY, CYCLICAL
     Route: 065
  11. DOXORUBICIN [Concomitant]
     Active Substance: DOXORUBICIN
     Indication: Metastases to lung
  12. DOXORUBICIN [Concomitant]
     Active Substance: DOXORUBICIN
     Indication: Metastases to ovary
  13. ETOPOSIDE [Concomitant]
     Active Substance: ETOPOSIDE
     Indication: Rhabdomyosarcoma
     Dosage: 100 MILLIGRAM/SQ. METER, BIWEEKLY
     Route: 065
  14. ETOPOSIDE [Concomitant]
     Active Substance: ETOPOSIDE
     Indication: Metastases to lung
  15. ETOPOSIDE [Concomitant]
     Active Substance: ETOPOSIDE
     Indication: Metastases to ovary
  16. IFOSFAMIDE [Concomitant]
     Active Substance: IFOSFAMIDE
     Indication: Rhabdomyosarcoma
     Dosage: 1800 MILLIGRAM/SQ. METER, BIWEEKLY, CYCLICAL
     Route: 065
  17. IFOSFAMIDE [Concomitant]
     Active Substance: IFOSFAMIDE
     Indication: Metastases to lung
  18. IFOSFAMIDE [Concomitant]
     Active Substance: IFOSFAMIDE
     Indication: Metastases to ovary
  19. GRANULOCYTE COLONY-STIMULATING FACTOR NOS [Concomitant]
     Active Substance: GRANULOCYTE COLONY-STIMULATING FACTOR NOS
     Indication: Prophylaxis
     Route: 065

REACTIONS (2)
  - Septic shock [Fatal]
  - Drug ineffective [Fatal]
